FAERS Safety Report 10419000 (Version 1)
Quarter: 2014Q2

REPORT INFORMATION
  Report Type: Spontaneous
  Country: US (occurrence: None)
  Receive Date: 20140617
  Receipt Date: 20140617
  Transmission Date: 20141212
  Serious: Yes (Other)
  Sender: FDA-Public Use
  Company Number: USW201309-000115

PATIENT
  Age: 67 Year
  Sex: Male
  Weight: 85 kg

DRUGS (2)
  1. APOKYN [Suspect]
     Indication: PARKINSON^S DISEASE
     Dosage: 0.2ML ONE TIME; SITE: ABDOMEN, SUBCUTANEOUS
     Route: 058
     Dates: start: 20130926
  2. ECOTRIN (ASPIRIN) [Concomitant]

REACTIONS (7)
  - Fatigue [None]
  - Headache [None]
  - Somnolence [None]
  - Asthenopia [None]
  - Dizziness [None]
  - Injection site bruising [None]
  - Nausea [None]
